FAERS Safety Report 6733502-3 (Version None)
Quarter: 2010Q2

REPORT INFORMATION
  Report Type: 
  Country: None (occurrence: None)
  Receive Date: 20100520
  Receipt Date: 20100517
  Transmission Date: 20101027
  Serious: Yes (Life-Threatening, Hospitalization, Other)
  Sender: FDA-Public Use
  Company Number: PHHY2009JP44023

PATIENT
  Sex: Male
  Weight: 55 kg

DRUGS (14)
  1. ICL670A ICL+DISTAB [Suspect]
     Indication: IRON OVERLOAD
     Dosage: 1000 MG DAILY
     Route: 048
     Dates: start: 20090904, end: 20090913
  2. ICL670A ICL+DISTAB [Suspect]
     Indication: MYELODYSPLASTIC SYNDROME
     Dosage: 1000 MG DAILY
     Route: 048
     Dates: start: 20091007, end: 20091008
  3. MUCOSTA [Concomitant]
     Indication: PROPHYLAXIS
     Dosage: 300 MG, UNK
     Route: 048
  4. ISCOTIN [Concomitant]
     Indication: PROPHYLAXIS
     Dosage: 300 MG, UNK
     Route: 048
  5. DAITEREN [Concomitant]
     Indication: PROPHYLAXIS
     Dosage: 1 G, UNK
     Route: 048
  6. ITRACONAZOLE [Concomitant]
     Indication: PROPHYLAXIS
     Dosage: 100 MG, UNK
     Route: 048
  7. ALLOPURINOL [Concomitant]
     Dosage: 100 MG, UNK
     Route: 048
     Dates: start: 20080923
  8. MAGMITT [Concomitant]
     Dosage: 990 MG, UNK
     Route: 048
  9. FLOMOX [Concomitant]
     Indication: PROPHYLAXIS
     Dosage: 300 MG, UNK
     Route: 048
     Dates: start: 20090904, end: 20090908
  10. MODACIN [Concomitant]
     Dosage: 2 G, UNK
     Route: 042
     Dates: start: 20090914, end: 20090924
  11. RED BLOOD CELLS [Concomitant]
     Dosage: 4 UNITS EVERY 2 WEEKS
     Dates: start: 20090701
  12. STEROIDS NOS [Concomitant]
  13. ANTIBIOTICS [Concomitant]
  14. ANTIPODAGRICS [Concomitant]

REACTIONS (21)
  - BLOOD LACTATE DEHYDROGENASE INCREASED [None]
  - DERMATITIS [None]
  - ERYTHEMA [None]
  - EYE DISORDER [None]
  - EYELID OEDEMA [None]
  - FLUSHING [None]
  - GASTROENTERITIS [None]
  - GLUCOSE URINE PRESENT [None]
  - HEPATIC FUNCTION ABNORMAL [None]
  - HYPERBILIRUBINAEMIA [None]
  - HYPOXIA [None]
  - INFECTION [None]
  - OXYGEN SATURATION DECREASED [None]
  - PLATELET COUNT DECREASED [None]
  - PYREXIA [None]
  - RASH [None]
  - RESPIRATORY DISORDER [None]
  - STEVENS-JOHNSON SYNDROME [None]
  - SWELLING [None]
  - SWELLING FACE [None]
  - VOMITING [None]
